FAERS Safety Report 7151237-2 (Version None)
Quarter: 2010Q4

REPORT INFORMATION
  Report Type: 
  Country: None (occurrence: None)
  Receive Date: 20101210
  Receipt Date: 20101130
  Transmission Date: 20110411
  Serious: Yes (Death)
  Sender: FDA-Public Use
  Company Number: NL-ELI_LILLY_AND_COMPANY-NL201012000143

PATIENT
  Sex: Female

DRUGS (22)
  1. FORTEO [Suspect]
     Indication: OSTEOPOROSIS
     Dosage: 20 UG, DAILY (1/D)
     Route: 058
     Dates: start: 20101118, end: 20101124
  2. ACENOCOUMAROL [Concomitant]
     Indication: THROMBOSIS
     Dosage: 1 MG, UNKNOWN
     Route: 065
  3. CALCIUM CARBONATE W/COLECALCIFEROL [Concomitant]
     Indication: OSTEOPOROSIS
     Dosage: 1.25 G 400IE, UNK
     Route: 065
  4. CITALOPRAM [Concomitant]
     Indication: DEPRESSION
     Dosage: 20 MG, UNKNOWN
     Route: 065
  5. DOMPERIDON /00498201/ [Concomitant]
     Indication: NAUSEA
     Dosage: 10 MG, UNKNOWN
     Route: 065
  6. EPOPROSTENOL SODIUM [Concomitant]
     Indication: PULMONARY HYPERTENSION
     Dosage: 500 UG, UNKNOWN
     Route: 065
  7. ESOMEPRAZOLE [Concomitant]
     Indication: PROPHYLAXIS
     Dosage: 40 MG, UNKNOWN
     Route: 065
  8. FENTANYL CITRATE [Concomitant]
     Indication: PAIN
     Dosage: 50 UG, PER HOUR
     Route: 065
  9. FERROFUMARAAT [Concomitant]
     Indication: IRON DEFICIENCY
     Dosage: 200 MG, UNKNOWN
     Route: 065
  10. FESOTERODINE [Concomitant]
     Indication: URINARY INCONTINENCE
     Dosage: 8 MG, UNKNOWN
     Route: 065
  11. FLUCLOXACILLINE [Concomitant]
     Dosage: 500 MG, UNKNOWN
     Route: 065
  12. FOLIC ACID [Concomitant]
     Dosage: 0.5 MG, UNK
     Route: 065
  13. FUROSEMIDE [Concomitant]
     Indication: FLUID RETENTION
     Dosage: 20 MG, UNKNOWN
     Route: 065
  14. FUROSEMIDE [Concomitant]
     Dosage: 40 MG, UNKNOWN
     Route: 065
  15. POTASSIUM CHLORIDE [Concomitant]
     Indication: HYPOKALAEMIA
     Dosage: 600 MG, UNKNOWN
     Route: 065
  16. LACTULOSE [Concomitant]
     Indication: CONSTIPATION
     Dosage: 670 MG/ML, UNK
     Route: 065
  17. LEVOTHYROXINE SODIUM [Concomitant]
     Dosage: 50 UG, UNKNOWN
     Route: 065
  18. OXAZEPAM [Concomitant]
     Indication: FEELING OF RELAXATION
     Dosage: 10 MG, UNKNOWN
     Route: 065
  19. OXYCODON [Concomitant]
     Indication: PAIN
     Dosage: 10 MG, UNKNOWN
     Route: 065
  20. PARACETAMOL [Concomitant]
     Indication: PAIN
     Dosage: 500 MG, UNKNOWN
     Route: 065
  21. SPIRONOLACTONE [Concomitant]
     Indication: FLUID RETENTION
     Dosage: 100 MG, UNKNOWN
     Route: 065
  22. TEMAZEPAM [Concomitant]
     Indication: INSOMNIA
     Dosage: 10 MG, UNKNOWN
     Route: 065

REACTIONS (1)
  - DEATH [None]
